FAERS Safety Report 4307357-0 (Version None)
Quarter: 2004Q1

REPORT INFORMATION
  Report Type: 
  Country: None (occurrence: None)
  Receive Date: 20040226
  Receipt Date: 20040212
  Transmission Date: 20041129
  Serious: Yes (Other)
  Sender: FDA-Public Use
  Company Number: 2004010465

PATIENT
  Sex: Male

DRUGS (1)
  1. ZITHROMAX [Suspect]
     Indication: RESPIRATORY DISORDER
     Dosage: ORAL
     Route: 048

REACTIONS (1)
  - TONGUE DISORDER [None]
